FAERS Safety Report 8188816-X (Version None)
Quarter: 2012Q1

REPORT INFORMATION
  Report Type: 
  Country: None (occurrence: None)
  Receive Date: 20120306
  Receipt Date: 20120224
  Transmission Date: 20120608
  Serious: Yes (Other)
  Sender: FDA-Public Use
  Company Number: US-GILEAD-2012-0051481

PATIENT
  Age: 22 Year
  Sex: Female

DRUGS (6)
  1. EDURANT [Concomitant]
     Indication: HIV INFECTION
     Dosage: 1 DF, QD
     Route: 048
     Dates: start: 20111111, end: 20120110
  2. NORVIR [Concomitant]
     Dosage: UNK
     Dates: start: 20111111, end: 20120110
  3. PREZISTA [Concomitant]
     Indication: HIV INFECTION
     Dosage: 2 DF, QD
     Route: 048
     Dates: end: 20111111
  4. PREZISTA [Concomitant]
     Dosage: 2 UNK, UNK
     Dates: start: 20111111, end: 20120110
  5. NORVIR [Concomitant]
     Indication: HIV INFECTION
     Dosage: 1 DF, QD
     Route: 048
     Dates: end: 20111111
  6. EMTRICITABINE AND TENOFOVIR DISOPROXIL FUMARATE [Suspect]
     Indication: HIV INFECTION
     Dosage: 1 DF, QD
     Route: 048

REACTIONS (1)
  - ABORTION SPONTANEOUS [None]
